FAERS Safety Report 7405983-3 (Version None)
Quarter: 2011Q2

REPORT INFORMATION
  Report Type: 
  Country: None (occurrence: None)
  Receive Date: 20110405
  Receipt Date: 20110405
  Transmission Date: 20111010
  Serious: Yes (Other)
  Sender: FDA-Public Use
  Company Number: None

PATIENT
  Sex: Female
  Weight: 83.0083 kg

DRUGS (2)
  1. LEVOXYL [Suspect]
  2. LEVOTHYROXINE SODIUM [Suspect]

REACTIONS (3)
  - PRODUCT SUBSTITUTION ISSUE [None]
  - DRUG EXPOSURE DURING PREGNANCY [None]
  - PRODUCT MEASURED POTENCY ISSUE [None]
